FAERS Safety Report 7586100-6 (Version None)
Quarter: 2011Q2

REPORT INFORMATION
  Report Type: 
  Country: None (occurrence: None)
  Receive Date: 20110629
  Receipt Date: 20110629
  Transmission Date: 20111010
  Serious: Yes (Life-Threatening)
  Sender: FDA-Public Use
  Company Number: None

PATIENT
  Age: 42 Year
  Sex: Male
  Weight: 77.3837 kg

DRUGS (2)
  1. LABETALOL HCL [Suspect]
     Indication: HYPERTENSION
     Dosage: 4 TWICE DAILY
     Dates: start: 20070901, end: 20110701
  2. HYDRALAZINE HCL 25MG TAB [Suspect]
     Indication: HYPERTENSION
     Dosage: 1 3X'S A DAY
     Dates: start: 20110411, end: 20110701

REACTIONS (3)
  - DISCOMFORT [None]
  - SOMNOLENCE [None]
  - ADVERSE EVENT [None]
